FAERS Safety Report 6573183-5 (Version None)
Quarter: 2010Q1

REPORT INFORMATION
  Report Type: 
  Country: None (occurrence: None)
  Receive Date: 20100208
  Receipt Date: 20100129
  Transmission Date: 20100710
  Serious: Yes (Death, Other)
  Sender: FDA-Public Use
  Company Number: JP-ABBOTT-09P-087-0596089-00

PATIENT
  Sex: Female
  Weight: 99 kg

DRUGS (15)
  1. NORVIR [Suspect]
     Indication: HIV INFECTION
     Dosage: 100 MG DAILY
     Route: 048
     Dates: start: 20060328, end: 20081118
  2. REYATAZ [Suspect]
     Indication: HIV INFECTION
     Dosage: 300 MG DAILY
     Route: 048
     Dates: start: 20060328, end: 20081118
  3. EPIVIR [Suspect]
     Indication: HIV INFECTION
     Route: 048
     Dates: start: 20060425, end: 20081118
  4. ZERIT [Suspect]
     Indication: HIV INFECTION
     Dosage: 80 MG DAILY
     Route: 048
     Dates: start: 20080425, end: 20081118
  5. TRUVADA [Suspect]
     Indication: HIV INFECTION
     Route: 048
     Dates: start: 20080401, end: 20080424
  6. CISPLATIN [Suspect]
     Indication: CERVIX CARCINOMA
     Route: 050
     Dates: start: 20080417, end: 20080417
  7. CISPLATIN [Suspect]
     Route: 050
     Dates: start: 20080501, end: 20080501
  8. CISPLATIN [Suspect]
     Route: 050
     Dates: start: 20080508, end: 20080508
  9. CISPLATIN [Suspect]
     Route: 050
     Dates: start: 20080522, end: 20080522
  10. CISPLATIN [Suspect]
     Route: 050
     Dates: start: 20080530, end: 20080530
  11. ALLOPURINOL [Concomitant]
     Indication: HYPERURICAEMIA
     Route: 048
     Dates: start: 20080401, end: 20081118
  12. PRAVASTATIN SODIUM [Concomitant]
     Indication: HYPERLIPIDAEMIA
     Route: 048
     Dates: start: 20080401, end: 20081118
  13. LEVOTHYROXINE SODIUM [Concomitant]
     Indication: HYPOTHYROIDISM
     Route: 048
     Dates: start: 20080401, end: 20081118
  14. FAMOTIDINE [Concomitant]
     Indication: GASTRIC ULCER
     Dates: start: 20060509, end: 20081118
  15. CISPLATIN [Concomitant]
     Dates: start: 20080415, end: 20080618

REACTIONS (5)
  - CERVIX CARCINOMA [None]
  - GENERAL PHYSICAL HEALTH DETERIORATION [None]
  - METABOLIC ACIDOSIS [None]
  - RENAL IMPAIRMENT [None]
  - VENTRICULAR TACHYCARDIA [None]
